FAERS Safety Report 11479176 (Version 1)
Quarter: 2015Q3

REPORT INFORMATION
  Report Type: Spontaneous
  Country: US (occurrence: US)
  Receive Date: 20150909
  Receipt Date: 20150909
  Transmission Date: 20151125
  Serious: No
  Sender: FDA-Public Use
  Company Number: US-JAZZ-2015-US-005372

PATIENT
  Age: 40 Year
  Sex: Female

DRUGS (11)
  1. PROVENTIL HFA [Concomitant]
     Active Substance: ALBUTEROL SULFATE
     Indication: PRODUCT USED FOR UNKNOWN INDICATION
     Dosage: UNK
     Dates: start: 20150327
  2. XYREM [Suspect]
     Active Substance: SODIUM OXYBATE
     Dosage: 2.75 G, BID
     Route: 048
     Dates: start: 2015, end: 201506
  3. BENADRYL [Suspect]
     Active Substance: DIPHENHYDRAMINE HYDROCHLORIDE
     Indication: SLEEP DISORDER
  4. PRENATAL COMPLETE [Concomitant]
     Indication: PRODUCT USED FOR UNKNOWN INDICATION
     Dosage: UNK
     Dates: start: 20150327
  5. XYREM [Suspect]
     Active Substance: SODIUM OXYBATE
     Indication: NARCOLEPSY
     Dosage: 2.25 G, BID
     Route: 048
     Dates: start: 20150404, end: 2015
  6. ADDERALL XR [Concomitant]
     Active Substance: AMPHETAMINE ASPARTATE\AMPHETAMINE SULFATE\DEXTROAMPHETAMINE SACCHARATE\DEXTROAMPHETAMINE SULFATE
     Indication: PRODUCT USED FOR UNKNOWN INDICATION
     Dosage: UNK
     Dates: start: 20150327
  7. ZYRTEC [Concomitant]
     Active Substance: CETIRIZINE HYDROCHLORIDE
     Indication: PRODUCT USED FOR UNKNOWN INDICATION
     Dosage: UNK
     Dates: start: 20150327
  8. XYREM [Suspect]
     Active Substance: SODIUM OXYBATE
     Indication: CATAPLEXY
     Dosage: DOSE ADJUSTMENTS
  9. ALBUTEROL. [Concomitant]
     Active Substance: ALBUTEROL
     Indication: PRODUCT USED FOR UNKNOWN INDICATION
     Dosage: 0.63MG/3ML, UNK
     Dates: start: 20150327
  10. METFORMIN [Concomitant]
     Active Substance: METFORMIN HYDROCHLORIDE
     Indication: PRODUCT USED FOR UNKNOWN INDICATION
     Dosage: UNK
     Dates: start: 20150327
  11. SYNTHROID [Concomitant]
     Active Substance: LEVOTHYROXINE SODIUM
     Indication: PRODUCT USED FOR UNKNOWN INDICATION
     Dosage: UNK
     Dates: start: 20150327

REACTIONS (25)
  - Pain [Not Recovered/Not Resolved]
  - Palpitations [Not Recovered/Not Resolved]
  - Feeling jittery [Unknown]
  - Chest pain [Recovered/Resolved]
  - Tremor [Not Recovered/Not Resolved]
  - Drug ineffective [Unknown]
  - Orthosis user [Unknown]
  - Unevaluable event [Unknown]
  - Tinnitus [Not Recovered/Not Resolved]
  - Wheezing [Not Recovered/Not Resolved]
  - Epistaxis [Not Recovered/Not Resolved]
  - Feeling abnormal [Unknown]
  - Lung disorder [Not Recovered/Not Resolved]
  - Fall [Recovered/Resolved]
  - Inflammation [Not Recovered/Not Resolved]
  - Sleep terror [Unknown]
  - Drug effect incomplete [Unknown]
  - Feeling abnormal [Unknown]
  - Presyncope [Not Recovered/Not Resolved]
  - Joint injury [Not Recovered/Not Resolved]
  - Dizziness [Recovered/Resolved]
  - Insomnia [Not Recovered/Not Resolved]
  - Condition aggravated [Not Recovered/Not Resolved]
  - Insomnia [Unknown]
  - Headache [Not Recovered/Not Resolved]

NARRATIVE: CASE EVENT DATE: 2015
